FAERS Safety Report 4536910-4 (Version None)
Quarter: 2004Q4

REPORT INFORMATION
  Report Type: 
  Country: None (occurrence: None)
  Receive Date: 20041223
  Receipt Date: 20041222
  Transmission Date: 20050328
  Serious: Yes (Other)
  Sender: FDA-Public Use
  Company Number: FR-GLAXOSMITHKLINE-B0362611A

PATIENT
  Sex: Male

DRUGS (5)
  1. AVODART [Suspect]
     Indication: BENIGN PROSTATIC HYPERPLASIA
     Dosage: .5MG PER DAY
     Route: 048
     Dates: start: 20041101, end: 20041201
  2. MONICOR [Concomitant]
  3. IKOREL [Concomitant]
  4. TAREG [Concomitant]
  5. ELISOR [Concomitant]

REACTIONS (1)
  - HYPERTENSION [None]
